FAERS Safety Report 4449076-6 (Version None)
Quarter: 2004Q3

REPORT INFORMATION
  Report Type: 
  Country: None (occurrence: None)
  Receive Date: 20040909
  Receipt Date: 20040819
  Transmission Date: 20050211
  Serious: Yes (Other)
  Sender: FDA-Public Use
  Company Number: USA040669320

PATIENT
  Age: 10 Year
  Sex: Female

DRUGS (2)
  1. STRATTERA [Suspect]
     Indication: ATTENTION DEFICIT/HYPERACTIVITY DISORDER
     Dosage: 40 MG/ 1 DAY
     Dates: end: 20040601
  2. LEXAPRO [Concomitant]

REACTIONS (4)
  - APNOEA [None]
  - CHOKING [None]
  - CONVULSION [None]
  - LOSS OF CONSCIOUSNESS [None]
